FAERS Safety Report 5407262-2 (Version None)
Quarter: 2007Q3

REPORT INFORMATION
  Report Type: 
  Country: None (occurrence: None)
  Receive Date: 20070807
  Receipt Date: 20070802
  Transmission Date: 20080115
  Serious: Yes (Hospitalization)
  Sender: FDA-Public Use
  Company Number: B0481748A

PATIENT
  Sex: Female

DRUGS (3)
  1. PAXIL [Suspect]
     Route: 048
     Dates: end: 20060901
  2. PAXIL [Suspect]
     Indication: DEPRESSION
     Route: 048
     Dates: start: 20070401, end: 20070401
  3. PAXIL [Suspect]
     Route: 048
     Dates: start: 20070101, end: 20070101

REACTIONS (3)
  - DIZZINESS [None]
  - NAUSEA [None]
  - VOMITING [None]
